FAERS Safety Report 7750137-4 (Version None)
Quarter: 2011Q3

REPORT INFORMATION
  Report Type: 
  Country: None (occurrence: None)
  Receive Date: 20110912
  Receipt Date: 20110829
  Transmission Date: 20111222
  Serious: No
  Sender: FDA-Public Use
  Company Number: TUK2011A00128

PATIENT
  Age: 60 Year
  Sex: Male

DRUGS (10)
  1. NU-SEALS(ACETYLSALICYLIC ACID) [Concomitant]
  2. PIOGLITAZONE HYDROCHLORIDE AND METFORMIN HYDROCHLORIDE [Suspect]
     Indication: DIABETES MELLITUS
     Dosage: 2 TAB. (1 TAB., 1 IN 2 D)
     Route: 048
     Dates: start: 20100501, end: 20110808
  3. CYMBALTA [Concomitant]
  4. HYPERCHOLESTEROLAEMIA [Concomitant]
  5. LANTUS [Concomitant]
  6. EZETIMIBE [Concomitant]
  7. RASILEZ (ALISKIREN) [Concomitant]
  8. APIDRA [Concomitant]
  9. AMLODIPINE BESYLATE [Concomitant]
  10. ONGLYZA [Concomitant]

REACTIONS (1)
  - BLOOD URINE PRESENT [None]
